FAERS Safety Report 14308914 (Version 1)
Quarter: 2017Q4

REPORT INFORMATION
  Report Type: Spontaneous
  Country: US (occurrence: US)
  Receive Date: 20171220
  Receipt Date: 20171220
  Transmission Date: 20180321
  Serious: No
  Sender: FDA-Public Use
  Company Number: None

PATIENT
  Age: 29 Year
  Sex: Female
  Weight: 43 kg

DRUGS (1)
  1. TOICAL STEROID [Suspect]
     Active Substance: UNSPECIFIED INGREDIENT
     Indication: ECZEMA

REACTIONS (7)
  - Condition aggravated [None]
  - Erythema [None]
  - Therapy cessation [None]
  - Secretion discharge [None]
  - Pruritus [None]
  - Insomnia [None]
  - Skin disorder [None]

NARRATIVE: CASE EVENT DATE: 20170727
